FAERS Safety Report 5175044-5 (Version None)
Quarter: 2006Q4

REPORT INFORMATION
  Report Type: 
  Country: None (occurrence: None)
  Receive Date: 20061206
  Receipt Date: 20061123
  Transmission Date: 20070319
  Serious: Yes (Other)
  Sender: FDA-Public Use
  Company Number: 232647

PATIENT
  Age: 32 Year
  Sex: Female
  Weight: 60 kg

DRUGS (7)
  1. MABTHERA(RITUXIMAB) CONC FOR SOLUTION FOR INFUSION [Suspect]
     Indication: KIDNEY TRANSPLANT REJECTION
     Dosage: 620 MG, 1/WEEK, INTRAVENOUS
     Route: 042
     Dates: start: 20061103
  2. CELLCEPT [Concomitant]
  3. MEDROL [Concomitant]
  4. VALCYTE [Concomitant]
  5. ZOROXIN (NORFLOXACIN) [Concomitant]
  6. LOFTYL (BUFLOMEDIL) [Concomitant]
  7. XANAX [Concomitant]

REACTIONS (4)
  - ALANINE AMINOTRANSFERASE INCREASED [None]
  - ASPARTATE AMINOTRANSFERASE INCREASED [None]
  - BLOOD LACTATE DEHYDROGENASE INCREASED [None]
  - CELL DEATH [None]
